FAERS Safety Report 6094971-8 (Version None)
Quarter: 2009Q1

REPORT INFORMATION
  Report Type: 
  Country: None (occurrence: None)
  Receive Date: 20090227
  Receipt Date: 20090217
  Transmission Date: 20090719
  Serious: No
  Sender: FDA-Public Use
  Company Number: GB-PFIZER INC-2009152233

PATIENT

DRUGS (1)
  1. AZITHROMYCIN [Suspect]
     Indication: INFECTION PROPHYLAXIS

REACTIONS (1)
  - HELICOBACTER INFECTION [None]
